FAERS Safety Report 9099808 (Version 1)
Quarter: 2013Q1

REPORT INFORMATION
  Report Type: Spontaneous
  Country: US (occurrence: US)
  Receive Date: 20130214
  Receipt Date: 20130214
  Transmission Date: 20140127
  Serious: No
  Sender: FDA-Public Use
  Company Number: US-B.I. PHARMACEUTICALS,INC./RIDGEFIELD-2013-BI-04108BP

PATIENT
  Sex: Male

DRUGS (3)
  1. SPIRIVA [Suspect]
     Indication: CHRONIC OBSTRUCTIVE PULMONARY DISEASE
     Dosage: 18 MCG
     Route: 055
     Dates: start: 20121220, end: 20130209
  2. WARFARIN [Concomitant]
     Indication: ATRIAL FLUTTER
     Dosage: 5 MG
     Route: 048
  3. TRACLEER [Concomitant]
     Indication: PULMONARY HYPERTENSION
     Dosage: 250 MG
     Route: 048

REACTIONS (3)
  - Oral mucosal blistering [Not Recovered/Not Resolved]
  - Abscess rupture [Recovered/Resolved]
  - Mouth haemorrhage [Recovered/Resolved]
